FAERS Safety Report 7395755-0 (Version None)
Quarter: 2011Q2

REPORT INFORMATION
  Report Type: 
  Country: None (occurrence: None)
  Receive Date: 20110405
  Receipt Date: 20091223
  Transmission Date: 20111010
  Serious: Yes (Hospitalization, Other)
  Sender: FDA-Public Use
  Company Number: PHHY2009DE67235

PATIENT

DRUGS (1)
  1. EXTAVIA [Suspect]
     Dosage: UNK
     Route: 058

REACTIONS (4)
  - ABNORMAL BEHAVIOUR [None]
  - CONFUSIONAL STATE [None]
  - FALL [None]
  - COGNITIVE DISORDER [None]
